FAERS Safety Report 19818805 (Version 1)
Quarter: 2021Q3

REPORT INFORMATION
  Report Type: Spontaneous
  Country: US (occurrence: US)
  Receive Date: 20210912
  Receipt Date: 20210912
  Transmission Date: 20211014
  Serious: No
  Sender: FDA-Public Use
  Company Number: US-ASTRAZENECA-2021A695885

PATIENT
  Age: 78 Year
  Sex: Male
  Weight: 82.1 kg

DRUGS (4)
  1. WELLBUTRIN [Suspect]
     Active Substance: BUPROPION HYDROCHLORIDE
     Route: 065
  2. CRESTOR [Suspect]
     Active Substance: ROSUVASTATIN CALCIUM
     Route: 048
  3. CHANTIX [Suspect]
     Active Substance: VARENICLINE TARTRATE
     Indication: CHRONIC OBSTRUCTIVE PULMONARY DISEASE
     Route: 065
  4. IBUPROFEN. [Concomitant]
     Active Substance: IBUPROFEN

REACTIONS (9)
  - Stress [Unknown]
  - Unevaluable event [Unknown]
  - Illness anxiety disorder [Unknown]
  - Discomfort [Unknown]
  - Flushing [Unknown]
  - Abdominal discomfort [Unknown]
  - Abnormal dreams [Unknown]
  - Pyrexia [Unknown]
  - Sleep disorder [Unknown]
